FAERS Safety Report 18228683 (Version 1)
Quarter: 2020Q3

REPORT INFORMATION
  Report Type: Spontaneous
  Country: US (occurrence: US)
  Receive Date: 20200903
  Receipt Date: 20200903
  Transmission Date: 20201103
  Serious: No
  Sender: FDA-Public Use
  Company Number: US-BECTON DICKINSON-2019BDN00337

PATIENT
  Sex: Female

DRUGS (1)
  1. CHLORAPREP WITH TINT [Suspect]
     Active Substance: CHLORHEXIDINE GLUCONATE\ISOPROPYL ALCOHOL
     Indication: INFECTION PROPHYLAXIS
     Route: 061

REACTIONS (6)
  - Application site pruritus [Recovered/Resolved]
  - Drug hypersensitivity [Recovered/Resolved]
  - Application site erythema [Recovered/Resolved]
  - Skin weeping [Recovered/Resolved]
  - Application site pain [Recovered/Resolved]
  - Application site rash [Recovered/Resolved]

NARRATIVE: CASE EVENT DATE: 20190709
